FAERS Safety Report 23886920 (Version 2)
Quarter: 2024Q3

REPORT INFORMATION
  Report Type: Spontaneous
  Country: NL (occurrence: NL)
  Receive Date: 20240523
  Receipt Date: 20240919
  Transmission Date: 20241016
  Serious: Yes (Other)
  Sender: PFIZER
  Company Number: NL-JNJFOC-20240528463

PATIENT
  Age: 78 Year
  Sex: Male
  Weight: 84 kg

DRUGS (2)
  1. RITUXIMAB [Suspect]
     Active Substance: RITUXIMAB
     Indication: Central nervous system lymphoma
     Dosage: 6 INFUSIONS
     Route: 042
     Dates: start: 20220805, end: 20221222
  2. IMBRUVICA [Suspect]
     Active Substance: IBRUTINIB
     Indication: Central nervous system lymphoma
     Dosage: 560 MG
     Route: 048
     Dates: start: 20220825, end: 20240506

REACTIONS (4)
  - Myalgia [Unknown]
  - Pneumonitis [Unknown]
  - Neoplasm recurrence [Unknown]
  - Off label use [Unknown]

NARRATIVE: CASE EVENT DATE: 20240822
